FAERS Safety Report 9548246 (Version 4)
Quarter: 2013Q4

REPORT INFORMATION
  Report Type: Spontaneous
  Country: MX (occurrence: MX)
  Receive Date: 20130924
  Receipt Date: 20131104
  Transmission Date: 20140711
  Serious: Yes (Hospitalization)
  Sender: FDA-Public Use
  Company Number: MX-MERCK-1309MEX004451

PATIENT
  Age: 34 Year
  Sex: Female
  Weight: 46 kg

DRUGS (2)
  1. SPRIAFIL [Suspect]
     Indication: PHAEHYPHOMYCOSIS
     Dosage: 800 MG, DAILY
     Route: 048
     Dates: start: 201006
  2. ITRACONAZOLE [Concomitant]
     Indication: PHAEHYPHOMYCOSIS
     Dosage: 400 MG DAILY
     Route: 048
     Dates: start: 201003, end: 201005

REACTIONS (1)
  - Transaminases increased [Recovered/Resolved]
